FAERS Safety Report 7704685-3 (Version None)
Quarter: 2011Q3

REPORT INFORMATION
  Report Type: 
  Country: None (occurrence: None)
  Receive Date: 20110823
  Receipt Date: 20110811
  Transmission Date: 20111222
  Serious: Yes (Life-Threatening, Hospitalization, Disabling)
  Sender: FDA-Public Use
  Company Number: DE-NOVOPROD-314396

PATIENT

DRUGS (9)
  1. EBRANTIL                           /00631801/ [Concomitant]
     Dosage: UNK
  2. AMINOSALICYLIC ACID [Suspect]
     Dosage: UNK
  3. AMLODIPINE [Concomitant]
     Dosage: UNK
  4. NEBIVOLOL HCL [Concomitant]
     Dosage: UNK
  5. VICTOZA [Suspect]
     Indication: TYPE 2 DIABETES MELLITUS
     Dosage: 0.6 MG, QD
     Route: 058
     Dates: start: 20100607, end: 20100613
  6. INDAPAMIDE [Concomitant]
     Dosage: UNK
  7. ATORVASTATIN CALCIUM [Concomitant]
     Dosage: UNK
  8. PANTOZOL                           /01263202/ [Concomitant]
     Dosage: UNK
  9. METFORMIN HCL [Suspect]
     Indication: TYPE 2 DIABETES MELLITUS
     Dosage: 1000 MG, QD
     Route: 048
     Dates: start: 20100607, end: 20100613

REACTIONS (8)
  - SHOCK [None]
  - HYPOTHERMIA [None]
  - LACTIC ACIDOSIS [None]
  - RENAL FAILURE ACUTE [None]
  - HYPOGLYCAEMIA [None]
  - DIARRHOEA [None]
  - WEIGHT DECREASED [None]
  - HYPERKALAEMIA [None]
